FAERS Safety Report 5759945-2 (Version None)
Quarter: 2008Q2

REPORT INFORMATION
  Report Type: 
  Country: None (occurrence: None)
  Receive Date: 20080605
  Receipt Date: 20080528
  Transmission Date: 20081010
  Serious: Yes (Hospitalization)
  Sender: FDA-Public Use
  Company Number: AU-ABBOTT-08P-008-0453714-00

PATIENT
  Age: 23 Year
  Sex: Female

DRUGS (2)
  1. SIBUTRAMINE [Suspect]
     Indication: WEIGHT CONTROL
     Dates: end: 20080522
  2. CHINESE HERB MEDICATIONS [Suspect]
     Indication: WEIGHT CONTROL
     Dates: end: 20080522

REACTIONS (1)
  - PSYCHIATRIC EVALUATION [None]
